FAERS Safety Report 9052591 (Version 5)
Quarter: 2014Q1

REPORT INFORMATION
  Report Type: Spontaneous
  Country: US (occurrence: US)
  Receive Date: 20130207
  Receipt Date: 20140203
  Transmission Date: 20141002
  Serious: Yes (Hospitalization, Other)
  Sender: FDA-Public Use
  Company Number: US-B.I. PHARMACEUTICALS,INC./RIDGEFIELD-2013-BI-02750BP

PATIENT
  Age: 83 Year
  Sex: Male
  Weight: 89.61 kg

DRUGS (6)
  1. PRADAXA [Suspect]
     Indication: ATRIAL FIBRILLATION
     Dosage: 300 MG
     Dates: start: 20110429, end: 20120126
  2. SYNTHROID [Concomitant]
     Indication: HYPOTHYROIDISM
     Dosage: 75 MCG
     Route: 048
  3. FLOMAX [Concomitant]
     Indication: PROSTATOMEGALY
     Dosage: 0.4 MG
     Route: 048
  4. CRESTOR [Concomitant]
     Indication: HYPERTENSION
     Dosage: 20 MG
     Route: 048
  5. LOSARTAN POTASSIUM [Concomitant]
     Indication: HYPERTENSION
     Dosage: 50 MG
     Route: 048
  6. ELMIRON [Concomitant]
     Indication: PROSTATE CANCER
     Dosage: 300 MG
     Route: 048

REACTIONS (2)
  - Urinary bladder haemorrhage [Unknown]
  - Haemorrhage [Unknown]
